FAERS Safety Report 5086449-5 (Version None)
Quarter: 2006Q3

REPORT INFORMATION
  Report Type: 
  Country: None (occurrence: None)
  Receive Date: 20060821
  Receipt Date: 20060821
  Transmission Date: 20061208
  Serious: Yes (Hospitalization)
  Sender: FDA-Public Use
  Company Number: None

PATIENT
  Age: 82 Year
  Sex: Male
  Weight: 65.7716 kg

DRUGS (9)
  1. FUROSEMIDE [Suspect]
     Dosage: 40 MG DAILY PO
     Route: 048
     Dates: start: 20060727, end: 20060810
  2. LISINOPRIL [Suspect]
     Dosage: 20 MG DAILY PO
     Route: 048
     Dates: start: 20060721, end: 20060810
  3. ALENDRONATE SODIUM [Concomitant]
  4. AMITRIPYTLINE [Concomitant]
  5. DOCUSATE NA [Concomitant]
  6. NABUMETONE [Concomitant]
  7. OMEPRAZOLE [Concomitant]
  8. PSYLLIUM [Concomitant]
  9. VARDENAFIL [Concomitant]

REACTIONS (1)
  - RENAL FAILURE ACUTE [None]
